FAERS Safety Report 4398168-9 (Version None)
Quarter: 2004Q3

REPORT INFORMATION
  Report Type: 
  Country: None (occurrence: None)
  Receive Date: 20040713
  Receipt Date: 20040629
  Transmission Date: 20050211
  Serious: Yes (Life-Threatening, Hospitalization)
  Sender: FDA-Public Use
  Company Number: STA-AE-04-MTX-273

PATIENT
  Age: 66 Year

DRUGS (3)
  1. METHOTREXATE [Suspect]
     Indication: RHEUMATOID ARTHRITIS
     Dosage: 10 MG 1X PER 1 WK, ORAL
     Route: 048
  2. MOBIC [Concomitant]
  3. RIMATIL (BUCILLAMINE) [Concomitant]

REACTIONS (3)
  - ASTHENIA [None]
  - PANCYTOPENIA [None]
  - STEVENS-JOHNSON SYNDROME [None]
